FAERS Safety Report 8535927-2 (Version None)
Quarter: 2012Q3

REPORT INFORMATION
  Report Type: 
  Country: None (occurrence: None)
  Receive Date: 20120725
  Receipt Date: 20120720
  Transmission Date: 20120928
  Serious: Yes (Hospitalization, Other)
  Sender: FDA-Public Use
  Company Number: PHHY2012BR040605

PATIENT
  Sex: Male

DRUGS (4)
  1. MYFORTIC [Suspect]
     Indication: RENAL TRANSPLANT
     Dosage: 360 MG (1 TABLET IN THE MORNING AND 1 TABLET AT NIGHT)
     Route: 048
  2. OMEPRAZOLE [Concomitant]
     Dosage: 1 DF, QD
  3. TACROLIMUS [Concomitant]
     Indication: RENAL TRANSPLANT
     Dosage: 4 DF, 2 DF IN THE MORNING AND 2 DF AT NIGHT
     Route: 048
  4. PREDNISONE [Concomitant]
     Dosage: 1 DF, QD
     Route: 048

REACTIONS (5)
  - PYREXIA [None]
  - PAPILLOMA VIRAL INFECTION [None]
  - BLOOD CREATININE ABNORMAL [None]
  - DIARRHOEA [None]
  - FLATULENCE [None]
